FAERS Safety Report 25846031 (Version 1)
Quarter: 2025Q3

REPORT INFORMATION
  Report Type: Spontaneous
  Country: US (occurrence: None)
  Receive Date: 20250924
  Receipt Date: 20250924
  Transmission Date: 20251021
  Serious: No
  Sender: FDA-CTU
  Company Number: None

PATIENT
  Age: 51 Year
  Sex: Female
  Weight: 61.65 kg

DRUGS (8)
  1. TAXOL [Suspect]
     Active Substance: PACLITAXEL
     Dates: start: 20250923, end: 20250923
  2. LEVOTHYROXINE [Concomitant]
     Active Substance: LEVOTHYROXINE
  3. Women^s one a day 50 plus [Concomitant]
  4. FERROUS SULFATE [Concomitant]
     Active Substance: FERROUS SULFATE
  5. VITAMIN C [Concomitant]
     Active Substance: ASCORBIC ACID
  6. COENZYME Q10 [Concomitant]
     Active Substance: DIETARY SUPPLEMENT\UBIDECARENONE
  7. wheatgrass juice [Concomitant]
  8. protein drink [Concomitant]

REACTIONS (8)
  - Infusion related reaction [None]
  - Photopsia [None]
  - Dyspnoea [None]
  - Cough [None]
  - Urticaria [None]
  - Feeling hot [None]
  - Dizziness [None]
  - Swelling face [None]

NARRATIVE: CASE EVENT DATE: 20250923
